FAERS Safety Report 9678960 (Version 1)
Quarter: 2013Q4

REPORT INFORMATION
  Report Type: Spontaneous
  Country: US (occurrence: US)
  Receive Date: 20131108
  Receipt Date: 20131108
  Transmission Date: 20140711
  Serious: Yes (Hospitalization)
  Sender: FDA-Public Use
  Company Number: US-PERRIGO-13US011307

PATIENT
  Sex: Female

DRUGS (1)
  1. DIHYDROERGOTAMINE MESYLATE RX 1 MG/ML 9V8 [Suspect]
     Indication: MIGRAINE
     Dosage: UNKNOWN, UNKNOWN
     Route: 042

REACTIONS (3)
  - Encephalopathy [Unknown]
  - Angiogram cerebral abnormal [Recovering/Resolving]
  - Neurological examination abnormal [Unknown]
